FAERS Safety Report 10967819 (Version 4)
Quarter: 2015Q2

REPORT INFORMATION
  Report Type: Spontaneous
  Country: US (occurrence: US)
  Receive Date: 20150330
  Receipt Date: 20150603
  Transmission Date: 20150821
  Serious: Yes (Hospitalization)
  Sender: FDA-Public Use
  Company Number: US-UNITED THERAPEUTICS-UNT-2015-003221

PATIENT
  Age: 43 Year
  Sex: Female
  Weight: 63.95 kg

DRUGS (4)
  1. REMODULIN [Suspect]
     Active Substance: TREPROSTINIL
     Dosage: 0.166 ?G/KG, CONTINUING
     Route: 058
  2. COUMADIN [Concomitant]
     Active Substance: WARFARIN SODIUM
     Indication: PRODUCT USED FOR UNKNOWN INDICATION
  3. REMODULIN [Suspect]
     Active Substance: TREPROSTINIL
     Indication: PULMONARY ARTERIAL HYPERTENSION
     Dosage: 0.16656 ?G/KG, CONTINUING
     Route: 058
     Dates: start: 20131011
  4. TRACLEER [Concomitant]
     Active Substance: BOSENTAN\BOSENTAN MONOHYDRATE
     Indication: PRODUCT USED FOR UNKNOWN INDICATION

REACTIONS (6)
  - Gait disturbance [Unknown]
  - Dialysis [Unknown]
  - Retroperitoneal haemorrhage [Recovered/Resolved]
  - Infusion site oedema [Unknown]
  - Infusion site pain [Unknown]
  - Hypotension [Unknown]

NARRATIVE: CASE EVENT DATE: 201503
